FAERS Safety Report 9535969 (Version 2)
Quarter: 2013Q4

REPORT INFORMATION
  Report Type: Report from Study
  Country: US (occurrence: US)
  Receive Date: 20130507
  Receipt Date: 20131127
  Transmission Date: 20140711
  Serious: Yes (Death)
  Sender: FDA-Public Use
  Company Number: PHEH2013US024680

PATIENT
  Age: 82 Year
  Sex: Female

DRUGS (2)
  1. TOBI [Suspect]
     Indication: BRONCHIECTASIS
     Dosage: 5 ML, BID
     Dates: start: 20130715
  2. TOBI [Suspect]
     Indication: PSEUDOMONAS INFECTION

REACTIONS (1)
  - Death [Fatal]
